FAERS Safety Report 24985743 (Version 1)
Quarter: 2025Q1

REPORT INFORMATION
  Report Type: Spontaneous
  Country: CN (occurrence: CN)
  Receive Date: 20250219
  Receipt Date: 20250219
  Transmission Date: 20250409
  Serious: Yes (Life-Threatening, Other)
  Sender: FRESENIUS KABI
  Company Number: CN-FreseniusKabi-FK202502428

PATIENT
  Age: 8 Year
  Sex: Female
  Weight: 28 kg

DRUGS (4)
  1. PROPOFOL [Suspect]
     Active Substance: PROPOFOL
     Indication: General anaesthesia
     Dosage: FORM OF ADMIN.: INJECTION
     Route: 042
     Dates: start: 20250124, end: 20250124
  2. FENTANYL CITRATE [Suspect]
     Active Substance: FENTANYL CITRATE
     Indication: General anaesthesia
     Dosage: FORM OF ADMIN.: INJECTION
     Route: 042
     Dates: start: 20250124, end: 20250124
  3. ATROPINE SULFATE [Suspect]
     Active Substance: ATROPINE SULFATE
     Indication: General anaesthesia
     Dosage: FORM OF ADMIN.: INJECTION
     Route: 042
     Dates: start: 20250124, end: 20250124
  4. CISATRACURIUM BESYLATE [Suspect]
     Active Substance: CISATRACURIUM BESYLATE
     Indication: General anaesthesia
     Dosage: FORM OF ADMIN.: INJECTION
     Route: 042
     Dates: start: 20250124, end: 20250124

REACTIONS (1)
  - Anaphylactic shock [Recovering/Resolving]

NARRATIVE: CASE EVENT DATE: 20250124
